FAERS Safety Report 5629534-9 (Version None)
Quarter: 2008Q1

REPORT INFORMATION
  Report Type: 
  Country: None (occurrence: None)
  Receive Date: 20080218
  Receipt Date: 20080207
  Transmission Date: 20080703
  Serious: Yes (Hospitalization, Other)
  Sender: FDA-Public Use
  Company Number: US-ROCHE-540985

PATIENT
  Age: 26 Year
  Sex: Female

DRUGS (5)
  1. PEG-INTERFERON A-2A (RO 25-8310) [Suspect]
     Dosage: PREFILLED SYRINGE
     Route: 065
     Dates: start: 20071031, end: 20080120
  2. RIBAVIRIN [Suspect]
     Route: 065
     Dates: start: 20071031, end: 20080120
  3. UNSPECIFIED MEDICATION [Concomitant]
     Dosage: PATIENT ON UNSPECIFIED NEBULIZER.
  4. UNSPECIFIED MEDICATION [Concomitant]
     Dosage: PATIENT ON UNSPECIFIED INHALER.
  5. IBUPROFEN [Concomitant]

REACTIONS (2)
  - DELUSION [None]
  - MENTAL DISORDER [None]
